FAERS Safety Report 10205446 (Version 1)
Quarter: 2014Q2

REPORT INFORMATION
  Report Type: Spontaneous
  Country: US (occurrence: US)
  Receive Date: 20140529
  Receipt Date: 20140529
  Transmission Date: 20141212
  Serious: Yes (Hospitalization)
  Sender: FDA-Public Use
  Company Number: US-MPIJNJ-2014MPI001544

PATIENT
  Sex: 0

DRUGS (1)
  1. VELCADE [Suspect]
     Indication: PRODUCT USED FOR UNKNOWN INDICATION
     Dosage: 3.5 MG, SINGLE DOSE VIAL
     Route: 058

REACTIONS (3)
  - Hospitalisation [Recovering/Resolving]
  - Rash [Recovering/Resolving]
  - Wound [Recovering/Resolving]
